FAERS Safety Report 9219813 (Version 1)
Quarter: 2013Q2

REPORT INFORMATION
  Report Type: Spontaneous
  Country: SE (occurrence: SE)
  Receive Date: 20130409
  Receipt Date: 20130409
  Transmission Date: 20140414
  Serious: Yes (Death, Other)
  Sender: FDA-Public Use
  Company Number: SE-ROCHE-1207873

PATIENT
  Age: 83 Year
  Sex: Male

DRUGS (8)
  1. ACTILYSE [Suspect]
     Indication: CEREBROVASCULAR ACCIDENT
     Dosage: APPROX FOR 1 HOUR
     Route: 065
     Dates: start: 20091217, end: 20091217
  2. FUROSEMIDE [Concomitant]
     Dosage: 500 MG HALF A TABLET ONCE DAILY
     Route: 065
  3. POTASSIUM CHLORIDE [Concomitant]
     Dosage: TWO TABLETS ONCE DAILY
     Route: 065
  4. TROMBYL [Concomitant]
     Dosage: 75 MG ONE TABLET DAILY
     Route: 065
  5. BEHEPAN [Concomitant]
     Dosage: 1 MG ONE TABLET DAILY
     Route: 065
  6. LEVAXIN [Concomitant]
     Route: 065
  7. ORALOVITE [Concomitant]
     Dosage: ONE TABLET TWO TIMES DAILY
     Route: 065
  8. TIMOLOL [Concomitant]
     Dosage: 5MG/ML TWO TIMES DAILY BILATERAL
     Route: 065

REACTIONS (10)
  - Pulmonary haemorrhage [Fatal]
  - Haemoptysis [Unknown]
  - Rales [Unknown]
  - Musculoskeletal stiffness [Unknown]
  - Hypoxia [Unknown]
  - Bradycardia [Unknown]
  - Dyspnoea [Unknown]
  - Oxygen saturation decreased [Unknown]
  - Left ventricular dysfunction [Unknown]
  - Depressed level of consciousness [Unknown]
